FAERS Safety Report 5416439-1 (Version None)
Quarter: 2007Q3

REPORT INFORMATION
  Report Type: 
  Country: None (occurrence: None)
  Receive Date: 20070814
  Receipt Date: 20070803
  Transmission Date: 20080115
  Serious: No
  Sender: FDA-Public Use
  Company Number: SPV1-2007-03649

PATIENT
  Age: 52 Year
  Sex: Female

DRUGS (13)
  1. FOSRENOL [Suspect]
     Indication: HYPERPHOSPHATAEMIA
     Dosage: 500 MG, 3X/DAY: TID;
     Dates: start: 20070216, end: 20070704
  2. FOSRENOL [Suspect]
     Indication: RENAL FAILURE
     Dosage: 500 MG, 3X/DAY: TID;
     Dates: start: 20070216, end: 20070704
  3. CLONIDIN (CLONIDINE HYDROCHLORIDE) [Concomitant]
  4. LACTULOSE STADA (LACTULOSE) [Concomitant]
  5. RAMIPRIL HEXAL (RAMIPRIL) [Concomitant]
  6. TORASEMID HEXAL PHARMA (TORASEMIDE) [Concomitant]
  7. PHOSEX (CALCIUM ACETATE) [Concomitant]
  8. MIMPARA /01735301/ (CINACALCET) [Concomitant]
  9. VERAPAMIL RATIOPHARM (VERAPAMIL HYDROCHLORIDE) [Concomitant]
  10. CARBIMAZOL HENNING (CARBIMAZOLE) [Concomitant]
  11. LORATADINE [Concomitant]
  12. RENAGEL /01459901/ (SEVELAMER) [Concomitant]
  13. ARANESP [Concomitant]

REACTIONS (4)
  - LIPOMA [None]
  - OEDEMA PERIPHERAL [None]
  - PANNICULITIS [None]
  - VARICOSE VEIN [None]
